FAERS Safety Report 6407680-X (Version None)
Quarter: 2009Q4

REPORT INFORMATION
  Report Type: 
  Country: None (occurrence: None)
  Receive Date: 20091020
  Receipt Date: 20091013
  Transmission Date: 20100525
  Serious: Yes (Hospitalization)
  Sender: FDA-Public Use
  Company Number: US-GILEAD-2009-0024788

PATIENT
  Sex: Female

DRUGS (11)
  1. LETAIRIS [Suspect]
     Indication: PULMONARY ARTERIAL HYPERTENSION
     Route: 048
     Dates: start: 20080711
  2. TOPROL-XL [Concomitant]
  3. VYTORIN [Concomitant]
  4. PLAVIX [Concomitant]
  5. LANTUS [Concomitant]
  6. AVANDIA [Concomitant]
  7. AMARYL [Concomitant]
  8. DEPAKOTE [Concomitant]
  9. NEXIUM [Concomitant]
  10. CALCITRIOL [Concomitant]
  11. VITAMIN D [Concomitant]

REACTIONS (1)
  - GASTROINTESTINAL DISORDER [None]
